FAERS Safety Report 6449495-2 (Version None)
Quarter: 2009Q4

REPORT INFORMATION
  Report Type: 
  Country: None (occurrence: None)
  Receive Date: 20091120
  Receipt Date: 20091109
  Transmission Date: 20100525
  Serious: Yes (Hospitalization, Other)
  Sender: FDA-Public Use
  Company Number: DE-ELI_LILLY_AND_COMPANY-DE200908006263

PATIENT
  Age: 63 Year
  Sex: Female

DRUGS (7)
  1. CYMBALTA [Suspect]
     Indication: DEPRESSION
     Dosage: 30 MG, UNK
     Dates: start: 20090817
  2. CYMBALTA [Suspect]
     Dosage: 90 MG, DAILY (1/D)
     Route: 048
     Dates: end: 20090101
  3. PIRACETAM [Concomitant]
  4. PANTOZOL [Concomitant]
  5. ALLOPURINOL [Concomitant]
  6. THOMASIN [Concomitant]
  7. VITAMIN E [Concomitant]

REACTIONS (9)
  - BLOOD FOLATE DECREASED [None]
  - BLOOD IRON DECREASED [None]
  - BLOOD MAGNESIUM DECREASED [None]
  - BLOOD SODIUM DECREASED [None]
  - CEREBRAL INFARCTION [None]
  - DEPRESSION [None]
  - EPILEPSY [None]
  - HAEMOGLOBIN DECREASED [None]
  - VITAMIN B12 DECREASED [None]
